FAERS Safety Report 25665595 (Version 2)
Quarter: 2025Q3

REPORT INFORMATION
  Report Type: Spontaneous
  Country: US (occurrence: US)
  Receive Date: 20250811
  Receipt Date: 20250903
  Transmission Date: 20251021
  Serious: No
  Sender: CSL BEHRING
  Company Number: US-BEH-2025215251

PATIENT
  Age: 62 Year
  Sex: Female

DRUGS (4)
  1. PRIVIGEN [Suspect]
     Active Substance: HUMAN IMMUNOGLOBULIN G
     Indication: Polyneuropathy
     Dosage: 15 G, QW
     Route: 042
     Dates: start: 20211223, end: 20250801
  2. PRIVIGEN [Suspect]
     Active Substance: HUMAN IMMUNOGLOBULIN G
     Route: 042
     Dates: start: 20211223, end: 20250801
  3. PRIVIGEN [Suspect]
     Active Substance: HUMAN IMMUNOGLOBULIN G
     Route: 042
     Dates: start: 20211223, end: 20250801
  4. GAMUNEX-C [Suspect]
     Active Substance: HUMAN IMMUNOGLOBULIN G
     Route: 065
     Dates: start: 20250814

REACTIONS (6)
  - Cough [Unknown]
  - Throat irritation [Unknown]
  - Paraesthesia [Unknown]
  - Headache [Unknown]
  - Malaise [Unknown]
  - Therapy change [Unknown]

NARRATIVE: CASE EVENT DATE: 20250814
